FAERS Safety Report 4622928-X (Version None)
Quarter: 2005Q1

REPORT INFORMATION
  Report Type: 
  Country: None (occurrence: None)
  Receive Date: 20050329
  Receipt Date: 20041125
  Transmission Date: 20050727
  Serious: Yes (Death)
  Sender: FDA-Public Use
  Company Number: 10014

PATIENT
  Age: 85 Year
  Sex: Female

DRUGS (5)
  1. METHOTREXATE [Suspect]
     Dosage: 6 MG WEEKLY UNK
     Route: 065
     Dates: start: 20020601, end: 20030701
  2. CALCITRIOL [Concomitant]
  3. ASPARATE CALCIUM [Concomitant]
  4. LEVOGLUTAMIDE/SODIUM GUALENATE [Concomitant]
  5. PREDNISOLONE [Concomitant]

REACTIONS (5)
  - FRACTURE [None]
  - INTERSTITIAL LUNG DISEASE [None]
  - NASOPHARYNGITIS [None]
  - PANCYTOPENIA [None]
  - UPPER RESPIRATORY TRACT INFLAMMATION [None]
